FAERS Safety Report 7241487-9 (Version None)
Quarter: 2011Q1

REPORT INFORMATION
  Report Type: 
  Country: None (occurrence: None)
  Receive Date: 20110124
  Receipt Date: 20101126
  Transmission Date: 20110831
  Serious: Yes (Hospitalization)
  Sender: FDA-Public Use
  Company Number: GB-ROCHE-754523

PATIENT
  Sex: Male

DRUGS (2)
  1. PEGINTERFERON ALFA-2A [Suspect]
     Dosage: PERMANENTLY STOP
     Route: 065
  2. RIBAVIRIN [Suspect]
     Dosage: PERMANENTLY STOP
     Route: 065

REACTIONS (1)
  - HEPATIC NEOPLASM MALIGNANT [None]
